FAERS Safety Report 21651273 (Version 1)
Quarter: 2022Q4

REPORT INFORMATION
  Report Type: Report from Study
  Country: US (occurrence: US)
  Receive Date: 20221128
  Receipt Date: 20221128
  Transmission Date: 20230113
  Serious: Yes (Life-Threatening, Hospitalization, Other)
  Sender: FDA-Public Use
  Company Number: US-CELGENE-USA-20200702433

PATIENT
  Age: 73 Year
  Sex: Male
  Weight: 85.5 kg

DRUGS (36)
  1. CYTARABINE [Suspect]
     Active Substance: CYTARABINE
     Indication: Acute myeloid leukaemia
     Route: 042
     Dates: start: 20160805, end: 20160930
  2. DAUNORUBICIN [Suspect]
     Active Substance: DAUNORUBICIN
     Indication: Acute myeloid leukaemia
     Route: 042
     Dates: start: 20160805, end: 20160807
  3. REMERON [Concomitant]
     Active Substance: MIRTAZAPINE
     Indication: Depression
     Route: 048
     Dates: start: 20160725
  4. KLOR-CON [Concomitant]
     Active Substance: POTASSIUM CHLORIDE
     Indication: Hypokalaemia
     Route: 048
     Dates: start: 20160929
  5. LEVAQUIN [Concomitant]
     Active Substance: LEVOFLOXACIN
     Indication: Infection prophylaxis
     Route: 048
     Dates: start: 20160725
  6. SENOKOT-S [Concomitant]
     Active Substance: DOCUSATE SODIUM\SENNOSIDES
     Indication: Constipation
     Dosage: 1 DF= 8.6-50 MG
     Route: 048
     Dates: start: 20160725
  7. MYCOSTATIN [Concomitant]
     Active Substance: NYSTATIN
     Indication: Inflammation
     Dosage: FREQUENCY TEXT: NOT PROVIDED?1DF= 100.000 UNITS/ML
     Route: 048
     Dates: start: 20190521
  8. HEPARIN [Concomitant]
     Active Substance: HEPARIN SODIUM
     Indication: Catheter management
     Dosage: 100 UNITS/ML
     Route: 042
     Dates: start: 20160915
  9. STIOLTO RESPIMAT [Concomitant]
     Active Substance: OLODATEROL HYDROCHLORIDE\TIOTROPIUM BROMIDE MONOHYDRATE
     Indication: Prophylaxis
     Dosage: 2.25-2.25 MCG ACTUATION MIST TO EACH NOSTRIL DAILY
     Route: 045
     Dates: start: 20190618
  10. STIOLTO RESPIMAT [Concomitant]
     Active Substance: OLODATEROL HYDROCHLORIDE\TIOTROPIUM BROMIDE MONOHYDRATE
     Indication: Pneumonia
     Dosage: 1 DF= 2 PUFFS DAILY
     Route: 055
     Dates: start: 20200107
  11. NEURONTIN [GABAPENTIN] [Concomitant]
     Indication: Neuropathy peripheral
     Dosage: FREQUENCY TEXT: AT BEDTIME
     Route: 048
     Dates: start: 20170424
  12. SPIRIVA [Concomitant]
     Active Substance: TIOTROPIUM BROMIDE MONOHYDRATE
     Indication: Prophylaxis
     Route: 055
     Dates: start: 20190618
  13. CALTRATE 600+D [Concomitant]
     Indication: Hypocalcaemia
     Dosage: FREQUENCY TEXT: NOT PROVIDED?1 DF= 600 MG (1500 MG) 400 UNITS PER TABLET
     Route: 048
     Dates: start: 20170130
  14. METHYLPREDNISOLONE [Concomitant]
     Active Substance: METHYLPREDNISOLONE
     Indication: Infection prophylaxis
     Dosage: 1DF= 750 MG/5 ML
     Route: 048
     Dates: start: 20160725
  15. SOLU-MEDROL [Concomitant]
     Active Substance: METHYLPREDNISOLONE SODIUM SUCCINATE
     Indication: Nausea
     Dosage: FREQUENCY TEXT: NOT PROVIDED?1DF= 125 MG/2 ML INJECTION 40 MG
     Route: 042
     Dates: start: 20160927
  16. SOLU-MEDROL [Concomitant]
     Active Substance: METHYLPREDNISOLONE SODIUM SUCCINATE
     Indication: Diarrhoea
  17. SOLU-MEDROL [Concomitant]
     Active Substance: METHYLPREDNISOLONE SODIUM SUCCINATE
     Indication: Vomiting
  18. ELIQUIS [Concomitant]
     Active Substance: APIXABAN
     Indication: Thrombosis prophylaxis
     Route: 048
     Dates: start: 20190824
  19. SINGULAIR [Concomitant]
     Active Substance: MONTELUKAST SODIUM
     Indication: Dyspnoea
     Route: 048
     Dates: start: 20190211
  20. MAOX [Concomitant]
     Indication: Dyspepsia
     Route: 048
     Dates: start: 20170518
  21. FOLVITE [FOLIC ACID] [Concomitant]
     Indication: Anaemia
     Route: 048
     Dates: start: 20170110
  22. ROXICODONE [Concomitant]
     Active Substance: OXYCODONE HYDROCHLORIDE
     Indication: Back pain
     Dosage: FREQUENCY TEXT: AS NEEDED
     Route: 048
     Dates: start: 20190330
  23. OSCAL [Concomitant]
     Active Substance: CALCIUM CARBONATE
     Indication: Dyspepsia
     Dosage: 1DF= 1,250 MG (500 MG ELEMENTAL) TABLET 1,000 MG
     Route: 048
     Dates: start: 20160927
  24. CANCIDAS [Concomitant]
     Active Substance: CASPOFUNGIN ACETATE
     Indication: Fungaemia
     Dosage: FREQUENCY TEXT: NOT PROVIDED?50 MG IN SODIUM CHLORIDE 0.9% (NS)
     Route: 042
     Dates: start: 20160831
  25. IMODIUM [Concomitant]
     Active Substance: LOPERAMIDE HYDROCHLORIDE
     Indication: Diarrhoea
     Dosage: FREQUENCY TEXT: PRN
     Route: 048
     Dates: start: 20160926
  26. AMBIEN [Concomitant]
     Active Substance: ZOLPIDEM TARTRATE
     Indication: Insomnia
     Route: 048
     Dates: start: 20160728
  27. ULTRAM [Concomitant]
     Active Substance: TRAMADOL HYDROCHLORIDE
     Indication: Arthralgia
     Dosage: FREQUENCY TEXT: PRN
     Route: 048
     Dates: start: 20160804
  28. ULTRAM [Concomitant]
     Active Substance: TRAMADOL HYDROCHLORIDE
     Indication: Headache
  29. ULTRAM [Concomitant]
     Active Substance: TRAMADOL HYDROCHLORIDE
     Indication: Pain
  30. ACTIGALL [Concomitant]
     Active Substance: URSODIOL
     Indication: Graft versus host disease
     Route: 048
     Dates: start: 20160725
  31. MAGNESIUM SULFATE [Concomitant]
     Active Substance: MAGNESIUM SULFATE
     Indication: Hypomagnesaemia
     Dosage: 2G IN 100 ML STERILE WATER
     Route: 042
     Dates: start: 20170127
  32. VITAMIN B12 [Concomitant]
     Active Substance: CYANOCOBALAMIN
     Indication: Anaemia
     Route: 048
     Dates: start: 20170113
  33. ONDANSETRON [Concomitant]
     Active Substance: ONDANSETRON
     Indication: Nausea
     Route: 048
     Dates: start: 20170214
  34. ZOVIRAX [Concomitant]
     Active Substance: ACYCLOVIR
     Indication: Infection prophylaxis
     Route: 048
     Dates: start: 20160725
  35. CHOLECALFICEROL [Concomitant]
     Indication: Prophylaxis
     Route: 048
     Dates: start: 20200107
  36. CYAMOCOBALAMIN [Concomitant]
     Indication: Vitamin supplementation
     Route: 048
     Dates: start: 20200107

REACTIONS (2)
  - Acute respiratory failure [Recovered/Resolved]
  - COVID-19 [Recovered/Resolved]

NARRATIVE: CASE EVENT DATE: 20200703
